FAERS Safety Report 8697954 (Version 2)
Quarter: 2013Q4

REPORT INFORMATION
  Report Type: Spontaneous
  Country: US (occurrence: US)
  Receive Date: 20120801
  Receipt Date: 20131031
  Transmission Date: 20140711
  Serious: Yes (Other)
  Sender: FDA-Public Use
  Company Number: US-MSD-1207USA012070

PATIENT
  Age: 70 Year
  Sex: Male

DRUGS (2)
  1. ASMANEX TWISTHALER [Suspect]
     Dosage: 1 DF, UNK
  2. ADVAIR [Suspect]
     Dosage: 1 DF, UNK

REACTIONS (4)
  - Skin ulcer [Unknown]
  - Urticaria [Unknown]
  - Rash [Unknown]
  - Vision blurred [Unknown]
